FAERS Safety Report 9012589 (Version 3)
Quarter: 2013Q1

REPORT INFORMATION
  Report Type: Report from Study
  Country: ES (occurrence: ES)
  Receive Date: 20130114
  Receipt Date: 20130312
  Transmission Date: 20140127
  Serious: Yes (Hospitalization)
  Sender: FDA-Public Use
  Company Number: ES-GLAXOSMITHKLINE-Z0018290A

PATIENT
  Age: 69 Year
  Sex: Female
  Weight: 76 kg

DRUGS (6)
  1. OFATUMUMAB [Suspect]
     Indication: CHRONIC LYMPHOCYTIC LEUKAEMIA
     Route: 042
     Dates: start: 20120516, end: 20121015
  2. BENDAMUSTINE [Suspect]
     Indication: CHRONIC LYMPHOCYTIC LEUKAEMIA
     Dosage: 90MGM2 CYCLIC
     Route: 042
     Dates: start: 20120517, end: 20120614
  3. INTRATECT [Suspect]
     Indication: HYPOGAMMAGLOBULINAEMIA
     Dosage: 15G SINGLE DOSE
     Route: 042
     Dates: start: 20130110, end: 20130110
  4. ACFOL [Concomitant]
     Dosage: 1CAP PER DAY
     Route: 048
     Dates: start: 20120508
  5. ACICLOVIR [Concomitant]
     Dosage: 800MG PER DAY
     Route: 048
     Dates: start: 20120508
  6. NOCTAMID [Concomitant]
     Dosage: 1MG PER DAY
     Route: 048
     Dates: start: 20121023

REACTIONS (3)
  - Lower respiratory tract infection [Recovered/Resolved]
  - Hypogammaglobulinaemia [Recovered/Resolved]
  - Infusion related reaction [Recovered/Resolved]
